FAERS Safety Report 8252277-2 (Version None)
Quarter: 2012Q2

REPORT INFORMATION
  Report Type: 
  Country: None (occurrence: None)
  Receive Date: 20120402
  Receipt Date: 20111005
  Transmission Date: 20120825
  Serious: No
  Sender: FDA-Public Use
  Company Number: US-ABBOTT-11P-163-0862098-00

PATIENT
  Sex: Male
  Weight: 79.45 kg

DRUGS (2)
  1. ANDROGEL [Suspect]
     Indication: BLOOD TESTOSTERONE DECREASED
     Dosage: 6 PUMPS PER DAY
     Dates: start: 20110901, end: 20110901
  2. ANDROGEL [Suspect]
     Dosage: 4 PUMPS PER DAY
     Dates: start: 20110901

REACTIONS (2)
  - MYALGIA [None]
  - ASTHENIA [None]
